FAERS Safety Report 7230693-5 (Version None)
Quarter: 2011Q1

REPORT INFORMATION
  Report Type: 
  Country: None (occurrence: None)
  Receive Date: 20110118
  Receipt Date: 20110114
  Transmission Date: 20110831
  Serious: No
  Sender: FDA-Public Use
  Company Number: US-PFIZER INC-2011010256

PATIENT
  Sex: Female
  Weight: 73.9 kg

DRUGS (3)
  1. LYBREL [Suspect]
     Indication: MENSTRUATION IRREGULAR
     Dosage: 90/20 UG, DAILY
     Route: 048
     Dates: start: 20070101, end: 20100901
  2. METHIMAZOLE [Concomitant]
     Indication: THYROID DISORDER
     Dosage: UNK
  3. ETHINYL ESTRADIOL W/NORGESTREL [Suspect]
     Indication: MENSTRUATION IRREGULAR
     Dosage: UNK
     Dates: start: 20100901

REACTIONS (4)
  - METRORRHAGIA [None]
  - UPPER RESPIRATORY TRACT CONGESTION [None]
  - COUGH [None]
  - BRONCHITIS [None]
